FAERS Safety Report 7397083-6 (Version None)
Quarter: 2011Q2

REPORT INFORMATION
  Report Type: 
  Country: None (occurrence: None)
  Receive Date: 20110406
  Receipt Date: 20110328
  Transmission Date: 20111010
  Serious: Yes (Death, Hospitalization)
  Sender: FDA-Public Use
  Company Number: A0811063A

PATIENT
  Age: 91 Year
  Sex: Male

DRUGS (4)
  1. ASPIRIN [Suspect]
  2. VALTREX [Suspect]
     Dosage: 1G THREE TIMES PER DAY
     Route: 048
     Dates: start: 20091005, end: 20091001
  3. TOPROL-XL [Concomitant]
     Dosage: 50MG PER DAY
  4. BACTROBAN [Concomitant]

REACTIONS (21)
  - RECTAL HAEMORRHAGE [None]
  - INFLUENZA LIKE ILLNESS [None]
  - URINARY INCONTINENCE [None]
  - DECREASED APPETITE [None]
  - FATIGUE [None]
  - HAEMORRHAGE [None]
  - CONFUSIONAL STATE [None]
  - MALAISE [None]
  - MELAENA [None]
  - GASTROINTESTINAL HAEMORRHAGE [None]
  - FAECES DISCOLOURED [None]
  - FAECAL INCONTINENCE [None]
  - DEATH [None]
  - GASTRIC HAEMORRHAGE [None]
  - HYPERSOMNIA [None]
  - ASTHENIA [None]
  - HAEMATOCHEZIA [None]
  - OVERDOSE [None]
  - CIRCULATORY COLLAPSE [None]
  - LETHARGY [None]
  - FALL [None]
